FAERS Safety Report 18986646 (Version 1)
Quarter: 2021Q1

REPORT INFORMATION
  Report Type: Spontaneous
  Country: US (occurrence: US)
  Receive Date: 20210309
  Receipt Date: 20210309
  Transmission Date: 20210420
  Serious: Yes (Other)
  Sender: FDA-Public Use
  Company Number: US-ALVOGEN-2021-ALVOGEN-116672

PATIENT
  Sex: Female

DRUGS (1)
  1. OXYCODONE [Suspect]
     Active Substance: OXYCODONE
     Indication: PRODUCT USED FOR UNKNOWN INDICATION
     Dosage: ALVOGEN BRAND STOPPED
     Dates: start: 202001

REACTIONS (15)
  - Vomiting [Recovering/Resolving]
  - Alopecia [Recovering/Resolving]
  - Arthralgia [Recovering/Resolving]
  - Rash erythematous [Unknown]
  - Hepatic enzyme abnormal [Recovering/Resolving]
  - Liver injury [Recovering/Resolving]
  - Chromaturia [Recovered/Resolved]
  - Product substitution issue [Unknown]
  - Illness [Recovering/Resolving]
  - Haemochromatosis [Unknown]
  - Rash macular [Unknown]
  - Jaundice [Recovering/Resolving]
  - Abdominal distension [Recovering/Resolving]
  - Pain [Recovering/Resolving]
  - Asthenia [Recovering/Resolving]

NARRATIVE: CASE EVENT DATE: 20200112
